FAERS Safety Report 20726481 (Version 1)
Quarter: 2022Q2

REPORT INFORMATION
  Report Type: Report from Study
  Country: US (occurrence: US)
  Receive Date: 20220419
  Receipt Date: 20220419
  Transmission Date: 20220721
  Serious: Yes (Other)
  Sender: FDA-Public Use
  Company Number: US-JAZZ-2014-US-012396

PATIENT
  Sex: Female

DRUGS (3)
  1. XYREM [Suspect]
     Active Substance: SODIUM OXYBATE
     Indication: Narcolepsy
     Dosage: 1.5 GRAM, BID
     Route: 048
     Dates: start: 201303, end: 2013
  2. XYREM [Suspect]
     Active Substance: SODIUM OXYBATE
     Indication: Cataplexy
     Dosage: DOSE ADJUSTMENTS
     Route: 048
  3. XYREM [Suspect]
     Active Substance: SODIUM OXYBATE
     Dosage: 3 GRAM, BID
     Route: 048
     Dates: start: 201405

REACTIONS (11)
  - Cardiac disorder [Unknown]
  - Lung disorder [Unknown]
  - Hemiparesis [Not Recovered/Not Resolved]
  - Blood pressure increased [Unknown]
  - Migraine with aura [Unknown]
  - Paranasal sinus discomfort [Unknown]
  - Visual field defect [Unknown]
  - Speech disorder [Unknown]
  - Musculoskeletal disorder [Unknown]
  - Magnetic resonance imaging abnormal [Unknown]
  - Urine odour abnormal [Unknown]
